FAERS Safety Report 9495769 (Version 2)
Quarter: 2013Q3

REPORT INFORMATION
  Report Type: Spontaneous
  Country: IT (occurrence: IT)
  Receive Date: 20130903
  Receipt Date: 20130903
  Transmission Date: 20140515
  Serious: Yes (Other)
  Sender: FDA-Public Use
  Company Number: IT-TEVA-421313ISR

PATIENT
  Age: 64 Year
  Sex: Female
  Weight: 77 kg

DRUGS (4)
  1. QUETIAPINE [Suspect]
     Route: 048
  2. LAMOTRIGINE [Interacting]
     Route: 048
  3. STILNOX [Interacting]
     Indication: INSOMNIA
     Dosage: 1 DOSAGE FORMS DAILY;
     Route: 048
     Dates: start: 20120101, end: 20130325
  4. CIPRALEX 20MG/ML [Suspect]
     Route: 048

REACTIONS (4)
  - Hallucination [Recovered/Resolved]
  - Somnambulism [Recovered/Resolved]
  - Drug interaction [Recovered/Resolved]
  - Sleep-related eating disorder [Recovered/Resolved]
